FAERS Safety Report 5373769-X (Version None)
Quarter: 2007Q2

REPORT INFORMATION
  Report Type: 
  Country: None (occurrence: None)
  Receive Date: 20070615
  Receipt Date: 20061129
  Transmission Date: 20071010
  Serious: Yes (Other)
  Sender: FDA-Public Use
  Company Number: 200519831US

PATIENT
  Age: 59 Year
  Sex: Male
  Weight: 84.09 kg

DRUGS (8)
  1. LANTUS [Suspect]
     Indication: DIABETES MELLITUS NON-INSULIN-DEPENDENT
     Dosage: 30 U HS
     Dates: start: 20051115
  2. LANTUS [Suspect]
     Indication: DIABETES MELLITUS NON-INSULIN-DEPENDENT
     Dosage: 45 U QD
  3. OPTICLIK [Suspect]
     Indication: DIABETES MELLITUS NON-INSULIN-DEPENDENT
  4. METFORMIN HYDROCHLORIDE [Concomitant]
  5. AMARYL [Concomitant]
  6. ZOCOR [Concomitant]
  7. BYETTA [Concomitant]
  8. METFORMIN HYDROCHLORIDE, ROSIGLITAZONE MALEATE (AVANDAMET) [Concomitant]

REACTIONS (2)
  - BLOOD GLUCOSE INCREASED [None]
  - HYPERGLYCAEMIA [None]
